FAERS Safety Report 7910271-2 (Version None)
Quarter: 2011Q4

REPORT INFORMATION
  Report Type: 
  Country: None (occurrence: None)
  Receive Date: 20111111
  Receipt Date: 20111028
  Transmission Date: 20120403
  Serious: Yes (Death, Hospitalization)
  Sender: FDA-Public Use
  Company Number: FR-ROCHE-1008169

PATIENT
  Age: 55 Year
  Sex: Male

DRUGS (6)
  1. MABTHERA [Suspect]
     Indication: B-CELL LYMPHOMA REFRACTORY
     Route: 042
  2. HYDROCORTISONE [Concomitant]
  3. CARBOPLATIN [Concomitant]
  4. DEXAMETHASONE [Concomitant]
  5. CYTARABINE [Concomitant]
  6. POLARAMINE [Concomitant]

REACTIONS (2)
  - BONE PAIN [None]
  - DISEASE PROGRESSION [None]
